FAERS Safety Report 11180366 (Version 1)
Quarter: 2015Q2

REPORT INFORMATION
  Report Type: Spontaneous
  Country: FR (occurrence: None)
  Receive Date: 20150609
  Receipt Date: 20150609
  Transmission Date: 20150821
  Serious: Yes (Other)
  Sender: FDA-Public Use
  Company Number: FK2015GSK077035

PATIENT
  Sex: Female

DRUGS (2)
  1. KIVEXA [Suspect]
     Active Substance: ABACAVIR SULFATE\LAMIVUDINE
     Indication: ILL-DEFINED DISORDER
     Dosage: U
     Dates: start: 20150304
  2. TIVICAY [Suspect]
     Active Substance: DOLUTEGRAVIR SODIUM
     Indication: ILL-DEFINED DISORDER
     Dosage: U
     Dates: start: 20150304

REACTIONS (3)
  - Dermatitis bullous [None]
  - Rash vesicular [None]
  - Lupus-like syndrome [None]

NARRATIVE: CASE EVENT DATE: 20150408
